FAERS Safety Report 6027656-4 (Version None)
Quarter: 2009Q1

REPORT INFORMATION
  Report Type: 
  Country: None (occurrence: None)
  Receive Date: 20090105
  Receipt Date: 20081231
  Transmission Date: 20090719
  Serious: Yes (Hospitalization)
  Sender: FDA-Public Use
  Company Number: US-BAYER-200813733BCC

PATIENT
  Age: 44 Year
  Sex: Male
  Weight: 86 kg

DRUGS (3)
  1. ASPIRIN [Suspect]
     Indication: DRUG USE FOR UNKNOWN INDICATION
     Route: 048
     Dates: start: 20000101
  2. ANTACID (NOS) [Concomitant]
  3. TYLENOL (CAPLET) [Concomitant]
     Route: 048

REACTIONS (2)
  - GASTRIC DISORDER [None]
  - HAEMORRHAGE [None]
